FAERS Safety Report 21815072 (Version 6)
Quarter: 2023Q4

REPORT INFORMATION
  Report Type: Spontaneous
  Country: JP (occurrence: JP)
  Receive Date: 20230104
  Receipt Date: 20231006
  Transmission Date: 20240110
  Serious: Yes (Other)
  Sender: FDA-Public Use
  Company Number: JP-002147023-NVSJ2022JP277179

PATIENT
  Age: 74 Year
  Sex: Male

DRUGS (3)
  1. DEFERASIROX [Suspect]
     Active Substance: DEFERASIROX
     Indication: Aplastic anaemia
     Dosage: 360 MG
     Route: 048
     Dates: start: 20220608, end: 20221106
  2. DEFERASIROX [Suspect]
     Active Substance: DEFERASIROX
     Dosage: 90 MG
     Route: 048
     Dates: start: 20221116
  3. ACHILLEA MILLEFOLIUM\RUBIA TINCTURE\SENNA FRUIT EXTRACT\SENNA LEAF\TAR [Suspect]
     Active Substance: ACHILLEA MILLEFOLIUM\RUBIA TINCTURE\SENNA FRUIT EXTRACT\SENNA LEAF\TARAXACUM OFFICINALE
     Indication: Product used for unknown indication
     Dosage: 1.5 G
     Route: 048
     Dates: start: 20220316, end: 20230110

REACTIONS (2)
  - Renal failure [Recovering/Resolving]
  - Renal tubular necrosis [Unknown]

NARRATIVE: CASE EVENT DATE: 20221116
